FAERS Safety Report 13133575 (Version 4)
Quarter: 2017Q1

REPORT INFORMATION
  Report Type: Spontaneous
  Country: FI (occurrence: FI)
  Receive Date: 20170120
  Receipt Date: 20170127
  Transmission Date: 20170428
  Serious: Yes (Life-Threatening, Hospitalization, Other)
  Sender: FDA-Public Use
  Company Number: PHHY2017FI008118

PATIENT
  Age: 87 Year
  Sex: Female

DRUGS (4)
  1. EXELON PATCH [Suspect]
     Active Substance: RIVASTIGMINE
     Indication: DEMENTIA ALZHEIMER^S TYPE
     Dosage: 4.6 MG, QD
     Route: 062
     Dates: start: 2008
  2. EBIXA [Concomitant]
     Active Substance: MEMANTINE HYDROCHLORIDE
     Indication: DEMENTIA ALZHEIMER^S TYPE
     Dosage: UNK
     Route: 065
     Dates: start: 2008
  3. RISEDRONAT TEVA [Suspect]
     Active Substance: RISEDRONATE SODIUM
     Indication: PRODUCT USED FOR UNKNOWN INDICATION
     Dosage: 35 MG, QW
     Route: 065
     Dates: start: 2016
  4. KETIPINOR [Concomitant]
     Active Substance: QUETIAPINE FUMARATE
     Indication: PRODUCT USED FOR UNKNOWN INDICATION
     Dosage: IN THE EVENINGS
     Route: 065

REACTIONS (19)
  - Speech disorder [Recovered/Resolved]
  - Chest pain [Recovered/Resolved]
  - Oesophagitis [Recovered/Resolved]
  - Femoral neck fracture [Recovered/Resolved]
  - Oral pain [Recovered/Resolved]
  - Dysphagia [Recovered/Resolved]
  - Pulmonary embolism [Recovered/Resolved]
  - Dyspnoea [Recovered/Resolved]
  - Paraesthesia [Recovered/Resolved]
  - Oropharyngeal pain [Recovered/Resolved]
  - Transient ischaemic attack [Recovered/Resolved]
  - Activities of daily living impaired [Unknown]
  - Oropharyngitis fungal [Recovered/Resolved]
  - Dysarthria [Recovered/Resolved]
  - Hypoaesthesia [Recovered/Resolved]
  - Fall [Recovered/Resolved]
  - Obstructive airways disorder [Recovered/Resolved]
  - Secretion discharge [Recovered/Resolved]
  - Oral candidiasis [Recovered/Resolved]

NARRATIVE: CASE EVENT DATE: 2016
